FAERS Safety Report 23935187 (Version 1)
Quarter: 2024Q2

REPORT INFORMATION
  Report Type: Spontaneous
  Country: PT (occurrence: PT)
  Receive Date: 20240604
  Receipt Date: 20240604
  Transmission Date: 20240716
  Serious: Yes (Death)
  Sender: FDA-Public Use
  Company Number: PT-CHEPLA-2024006820

PATIENT
  Age: 41 Year
  Sex: Female

DRUGS (4)
  1. GANCICLOVIR [Suspect]
     Active Substance: GANCICLOVIR
  2. FLUCONAZOLE [Suspect]
     Active Substance: FLUCONAZOLE
  3. DEXAMETHASONE [Suspect]
     Active Substance: DEXAMETHASONE
  4. SULFAMETHOXAZOLE\TRIMETHOPRIM [Suspect]
     Active Substance: SULFAMETHOXAZOLE\TRIMETHOPRIM

REACTIONS (1)
  - Neurological decompensation [Fatal]
